FAERS Safety Report 9843294 (Version 2)
Quarter: 2014Q1

REPORT INFORMATION
  Report Type: Spontaneous
  Country: HU (occurrence: HU)
  Receive Date: 20140125
  Receipt Date: 20140221
  Transmission Date: 20141002
  Serious: Yes (Hospitalization)
  Sender: FDA-Public Use
  Company Number: US-ASTRAZENECA-2014SE04658

PATIENT
  Age: 3 Month
  Sex: Female

DRUGS (1)
  1. SYNAGIS [Suspect]
     Indication: ANTIVIRAL PROPHYLAXIS
     Dosage: DOSE BASED ON BODY WEIGHT, MONTHLY
     Route: 030
     Dates: start: 20131210

REACTIONS (3)
  - Musculoskeletal stiffness [Unknown]
  - Salivary hypersecretion [Unknown]
  - Muscle spasms [Unknown]
